FAERS Safety Report 8131451-X (Version None)
Quarter: 2012Q1

REPORT INFORMATION
  Report Type: 
  Country: None (occurrence: None)
  Receive Date: 20120130
  Receipt Date: 20120124
  Transmission Date: 20120608
  Serious: Yes (Other)
  Sender: FDA-Public Use
  Company Number: 2011027813

PATIENT
  Sex: Female
  Weight: 66.2252 kg

DRUGS (25)
  1. HIZENTRA [Suspect]
     Indication: IMMUNODEFICIENCY COMMON VARIABLE
     Dosage: 1 (5 G 1X/WEEK, INFUSED 25 ML VIA MULTIPLE SITES SUBCUTANEOUS), (), (), ()
     Route: 058
     Dates: start: 20110909, end: 20110909
  2. HIZENTRA [Suspect]
     Indication: IMMUNODEFICIENCY COMMON VARIABLE
     Dosage: 1 (5 G 1X/WEEK, INFUSED 25 ML VIA MULTIPLE SITES SUBCUTANEOUS), (), (), ()
     Route: 058
     Dates: start: 20110909, end: 20110909
  3. HIZENTRA [Suspect]
     Indication: IMMUNODEFICIENCY COMMON VARIABLE
     Dosage: 1 (5 G 1X/WEEK, INFUSED 25 ML VIA MULTIPLE SITES SUBCUTANEOUS), (), (), ()
     Route: 058
     Dates: start: 20110303
  4. HIZENTRA [Suspect]
     Indication: IMMUNODEFICIENCY COMMON VARIABLE
     Dosage: 1 (5 G 1X/WEEK, INFUSED 25 ML VIA MULTIPLE SITES SUBCUTANEOUS), (), (), ()
     Route: 058
     Dates: start: 20110303
  5. HIZENTRA [Suspect]
  6. CYMBALTA [Concomitant]
  7. PREVACID [Concomitant]
  8. IBUPROFEN (ADVIL) [Concomitant]
  9. SYMBICORT [Concomitant]
  10. HIZENTRA [Suspect]
  11. IMITREX [Concomitant]
  12. VERAPAMIL ER (VERAPAMIL) [Concomitant]
  13. OBETROL [Concomitant]
  14. CRESTOR [Concomitant]
  15. HIZENTRA [Suspect]
  16. KLONOPIN [Concomitant]
  17. LESCOL XL [Concomitant]
  18. XOPENEX HFA (LEVOSALBUTAMOL) [Concomitant]
  19. PHENERGAN [Concomitant]
  20. MUCINEX [Concomitant]
  21. FLUTICASONE PROP (FLUTICASONE) [Concomitant]
  22. FLEXERIL [Concomitant]
  23. THYROID TAB [Concomitant]
  24. PERCOCET [Concomitant]
  25. ZYRTEC [Concomitant]

REACTIONS (4)
  - HYPOAESTHESIA [None]
  - NEUROPATHY PERIPHERAL [None]
  - ARTHRALGIA [None]
  - INFUSION SITE PAIN [None]
